FAERS Safety Report 6403163-1 (Version None)
Quarter: 2009Q4

REPORT INFORMATION
  Report Type: 
  Country: None (occurrence: None)
  Receive Date: 20091015
  Receipt Date: 20091015
  Transmission Date: 20100525
  Serious: Yes (Disabling)
  Sender: FDA-Public Use
  Company Number: None

PATIENT
  Age: 56 Year
  Sex: Male
  Weight: 97.5234 kg

DRUGS (1)
  1. ETHAMBUTOL HYDROCHLORIDE [Suspect]
     Indication: MYCOBACTERIUM AVIUM COMPLEX INFECTION
     Dosage: 400MG TABLETS TAKE 3-4 TABS ONCE DAILY ONCE DAILY
     Dates: start: 20090319, end: 20090602

REACTIONS (7)
  - BALANCE DISORDER [None]
  - HYPOAESTHESIA [None]
  - INJURY [None]
  - NEUROPATHY PERIPHERAL [None]
  - RASH GENERALISED [None]
  - SKIN EXFOLIATION [None]
  - WALKING AID USER [None]
